FAERS Safety Report 20469773 (Version 2)
Quarter: 2022Q1

REPORT INFORMATION
  Report Type: Spontaneous
  Country: US (occurrence: US)
  Receive Date: 20220214
  Receipt Date: 20220310
  Transmission Date: 20220423
  Serious: No
  Sender: FDA-Public Use
  Company Number: US-BAYER-2022A022107

PATIENT
  Age: 50 Year
  Sex: Female

DRUGS (1)
  1. ESTRADIOL HEMIHYDRATE [Suspect]
     Active Substance: ESTRADIOL HEMIHYDRATE
     Dosage: UNK
     Route: 062
     Dates: start: 202201

REACTIONS (3)
  - Device adhesion issue [None]
  - Application site rash [None]
  - Application site erythema [None]

NARRATIVE: CASE EVENT DATE: 20220101
